FAERS Safety Report 11171863 (Version 7)
Quarter: 2015Q3

REPORT INFORMATION
  Report Type: Spontaneous
  Country: JP (occurrence: JP)
  Receive Date: 20150608
  Receipt Date: 20150710
  Transmission Date: 20151125
  Serious: Yes (Death, Life-Threatening, Other)
  Sender: FDA-Public Use
  Company Number: JP-GLAXOSMITHKLINE-JP2015JPN076445

PATIENT
  Age: 84 Year
  Sex: Male
  Weight: 58 kg

DRUGS (17)
  1. MAGMITT [Concomitant]
     Active Substance: MAGNESIUM OXIDE
     Dosage: 330 MG, BID
  2. S ADCHNON [Concomitant]
     Dosage: 30 MG, BID
  3. HEXATRON [Concomitant]
     Dosage: 250 MG, BID
  4. SENNOSIDE [Concomitant]
     Active Substance: SENNOSIDES
     Dosage: 12 MG, QD
  5. MAGNESIUM OXIDE. [Concomitant]
     Active Substance: MAGNESIUM OXIDE
     Dosage: 330 MG, BID
     Dates: end: 20150604
  6. ARICEPT [Concomitant]
     Active Substance: DONEPEZIL HYDROCHLORIDE
     Dosage: 5 MG, QD
  7. NORVASC [Concomitant]
     Active Substance: AMLODIPINE BESYLATE
     Dosage: 2.5 MG, QD
  8. COCARL [Concomitant]
     Active Substance: ACETAMINOPHEN
     Dosage: 600 MG, TID
     Dates: start: 20150531, end: 20150602
  9. RABEPRAZOLE SODIUM. [Concomitant]
     Active Substance: RABEPRAZOLE SODIUM
     Dosage: 10 MG, QD
     Dates: end: 20150604
  10. SENNARIDE [Concomitant]
     Active Substance: SENNOSIDES A AND B
     Dosage: 12 MG, QD
     Dates: end: 20150604
  11. MEMARY [Concomitant]
     Active Substance: MEMANTINE HYDROCHLORIDE
     Dosage: 10 MG, QD
  12. GENTAMICIN SULFATE. [Concomitant]
     Active Substance: GENTAMICIN SULFATE
     Dosage: UNK, BID
     Dates: end: 20150602
  13. REBAMIPIDE [Concomitant]
     Active Substance: REBAMIPIDE
     Dosage: 100 MG, TID
     Dates: end: 20150604
  14. FLIVAS [Concomitant]
     Active Substance: NAFTOPIDIL
     Dosage: 25 MG, QD
  15. VALTREX [Suspect]
     Active Substance: VALACYCLOVIR HYDROCHLORIDE
     Indication: HERPES ZOSTER
     Dosage: 1000 MG, TID
     Route: 048
     Dates: start: 20150531, end: 20150601
  16. VALTREX [Suspect]
     Active Substance: VALACYCLOVIR HYDROCHLORIDE
     Dosage: 1000 MG, QD
     Route: 048
     Dates: start: 20150602, end: 20150603
  17. MEMARY [Concomitant]
     Active Substance: MEMANTINE HYDROCHLORIDE
     Dosage: 5 MG, QD
     Dates: start: 20150509

REACTIONS (13)
  - Altered state of consciousness [Not Recovered/Not Resolved]
  - Toxic encephalopathy [Not Recovered/Not Resolved]
  - Blood creatinine increased [Not Recovered/Not Resolved]
  - Faecal incontinence [Unknown]
  - Acute kidney injury [Fatal]
  - Seizure [Not Recovered/Not Resolved]
  - Incorrect dosage administered [Unknown]
  - Dyskinesia [Unknown]
  - Ammonia increased [Unknown]
  - Urinary incontinence [Unknown]
  - Renal impairment [Unknown]
  - Blood sodium decreased [Unknown]
  - Blood potassium increased [Unknown]

NARRATIVE: CASE EVENT DATE: 20150601
